FAERS Safety Report 21889545 (Version 1)
Quarter: 2023Q1

REPORT INFORMATION
  Report Type: Spontaneous
  Country: GB (occurrence: GB)
  Receive Date: 20230120
  Receipt Date: 20230120
  Transmission Date: 20230417
  Serious: Yes (Hospitalization, Other)
  Sender: FDA-Public Use
  Company Number: None

PATIENT
  Age: 85 Year
  Sex: Female
  Weight: 62.40 kg

DRUGS (12)
  1. APIXABAN [Suspect]
     Active Substance: APIXABAN
     Indication: Product used for unknown indication
  2. CLOTRIMAZOLE [Concomitant]
     Active Substance: CLOTRIMAZOLE
     Dosage: APPLY 2 TO 3 TIMES DAILY
     Dates: start: 20221114
  3. ESOMEPRAZOLE [Concomitant]
     Active Substance: ESOMEPRAZOLE
     Dosage: (ADVISED BY CONSULTANT)
     Dates: start: 20221220
  4. GABAPENTIN [Concomitant]
     Active Substance: GABAPENTIN
     Dosage: 1-2 AT NIGHT
     Dates: start: 20221115, end: 20221221
  5. CHOLECALCIFEROL [Concomitant]
     Active Substance: CHOLECALCIFEROL
     Dates: start: 20221025
  6. LATANOPROST [Concomitant]
     Active Substance: LATANOPROST
     Dosage: ONE DROP AT NIGHT, TO BOTH EYES
     Dates: start: 20221220
  7. NITROFURANTOIN [Concomitant]
     Active Substance: NITROFURANTOIN
     Dosage: 1 CAPSULE TWICE DAILY
     Dates: start: 20221031
  8. PIVMECILLINAM HYDROCHLORIDE [Concomitant]
     Active Substance: PIVMECILLINAM HYDROCHLORIDE
     Dates: start: 20221110
  9. RAMIPRIL [Concomitant]
     Active Substance: RAMIPRIL
     Dates: start: 20221202, end: 20221221
  10. ALBUTEROL [Concomitant]
     Active Substance: ALBUTEROL
     Dosage: 1- 2 PUFFS, UP TO FOUR TIMES DAILY, INHALATION GAS
     Route: 055
     Dates: start: 20221025, end: 20221221
  11. VERAPAMIL [Concomitant]
     Active Substance: VERAPAMIL HYDROCHLORIDE
     Indication: Cardiac disorder
     Dates: start: 20221220
  12. ACETAMINOPHEN\CODEINE PHOSPHATE [Concomitant]
     Active Substance: ACETAMINOPHEN\CODEINE PHOSPHATE
     Dosage: 1-2 TABLETS UP TO 4 TIMES A DAY
     Dates: start: 20221115, end: 20221221

REACTIONS (1)
  - Pulmonary haemorrhage [Recovering/Resolving]

NARRATIVE: CASE EVENT DATE: 20221208
